FAERS Safety Report 9131872 (Version 1)
Quarter: 2013Q1

REPORT INFORMATION
  Report Type: Report from Study
  Country: US (occurrence: US)
  Receive Date: 20130301
  Receipt Date: 20130301
  Transmission Date: 20140127
  Serious: No
  Sender: FDA-Public Use
  Company Number: US-MYLANLABS-2012S1018831

PATIENT
  Age: 29 Year
  Sex: Female

DRUGS (5)
  1. AMNESTEEM CAPSULES [Suspect]
     Indication: ACNE
     Route: 048
     Dates: start: 20120717, end: 201207
  2. AMNESTEEM CAPSULES [Suspect]
     Indication: ACNE
     Route: 048
     Dates: start: 2012, end: 20120906
  3. TEGRETOL [Concomitant]
  4. DEPAKOTE [Concomitant]
  5. BOTOX [Concomitant]

REACTIONS (1)
  - Rash [Recovered/Resolved]
